FAERS Safety Report 20728579 (Version 1)
Quarter: 2022Q2

REPORT INFORMATION
  Report Type: Spontaneous
  Country: US (occurrence: US)
  Receive Date: 20220420
  Receipt Date: 20220420
  Transmission Date: 20220720
  Serious: No
  Sender: FDA-Public Use
  Company Number: US-drreddys-SPO/USA/22/0148898

PATIENT
  Age: 66 Year
  Sex: Female
  Weight: 53.55 kg

DRUGS (4)
  1. ESZOPICLONE [Suspect]
     Active Substance: ESZOPICLONE
     Indication: Sleep disorder
  2. QUETIAPINE FUMARATE [Suspect]
     Active Substance: QUETIAPINE FUMARATE
     Indication: Product used for unknown indication
  3. TRANYLCYPROMINE [Suspect]
     Active Substance: TRANYLCYPROMINE
     Indication: Product used for unknown indication
  4. CLONAZEPAM [Concomitant]
     Active Substance: CLONAZEPAM
     Indication: Product used for unknown indication

REACTIONS (2)
  - Drug ineffective [Unknown]
  - Product quality issue [Unknown]
